FAERS Safety Report 7319438-8 (Version None)
Quarter: 2011Q1

REPORT INFORMATION
  Report Type: 
  Country: None (occurrence: None)
  Receive Date: 20110228
  Receipt Date: 20100325
  Transmission Date: 20110831
  Serious: No
  Sender: FDA-Public Use
  Company Number: A0852003A

PATIENT
  Age: 20 Year
  Sex: Male

DRUGS (6)
  1. PROVIGIL [Concomitant]
  2. LAMOTRIGINE [Suspect]
     Indication: BIPOLAR DISORDER
     Dosage: 200MG PER DAY
     Route: 048
     Dates: start: 20090201
  3. PENTASA [Concomitant]
  4. SERTRALINE HYDROCHLORIDE [Concomitant]
  5. THYROID TAB [Concomitant]
  6. OMEPRAZOLE [Concomitant]

REACTIONS (2)
  - TOOTH EROSION [None]
  - DENTAL CARIES [None]
